FAERS Safety Report 9800058 (Version 2)
Quarter: 2014Q1

REPORT INFORMATION
  Report Type: Spontaneous
  Country: US (occurrence: US)
  Receive Date: 20140106
  Receipt Date: 20140106
  Transmission Date: 20141002
  Serious: No
  Sender: FDA-Public Use
  Company Number: US-GILEAD-2010-0032113

PATIENT
  Age: 31 Year
  Sex: Female
  Weight: 58.97 kg

DRUGS (14)
  1. LETAIRIS [Suspect]
     Indication: PULMONARY ARTERIAL HYPERTENSION
     Route: 048
     Dates: start: 20100701
  2. CARDIZEM [Concomitant]
  3. ARAVA [Concomitant]
  4. PREDNISONE [Concomitant]
  5. CELLCEPT [Concomitant]
  6. PERIACTIN [Concomitant]
  7. FEXOFENADINE [Concomitant]
  8. NEURONTIN [Concomitant]
  9. ACTONEL [Concomitant]
  10. FOLIC ACID [Concomitant]
  11. MULTIVITAMIN [Concomitant]
  12. VITAMIN D [Concomitant]
  13. POTASSIUM [Concomitant]
  14. CALCIUM [Concomitant]

REACTIONS (1)
  - Headache [Unknown]
